FAERS Safety Report 8850276 (Version 3)
Quarter: 2013Q1

REPORT INFORMATION
  Report Type: Report from Study
  Country: US (occurrence: US)
  Receive Date: 20121019
  Receipt Date: 20130102
  Transmission Date: 20140127
  Serious: Yes (Other)
  Sender: FDA-Public Use
  Company Number: US-ROCHE-1139243

PATIENT
  Age: 70 Year
  Sex: Male
  Weight: 77.18 kg

DRUGS (7)
  1. VEMURAFENIB [Suspect]
     Indication: METASTATIC MALIGNANT MELANOMA
     Route: 048
     Dates: start: 20120704, end: 20121030
  2. ZOLOFT [Concomitant]
     Indication: DEPRESSION
     Route: 048
  3. AUGMENTIN [Concomitant]
     Indication: INFECTION
     Route: 048
  4. ALLOPURINOL [Concomitant]
     Indication: BLOOD URIC ACID
     Route: 048
  5. METOPROLOL TARTRATE [Concomitant]
     Indication: HYPERTENSION
     Route: 048
  6. XANAX [Concomitant]
     Indication: ANXIETY
     Route: 048
  7. IMODIUM [Concomitant]
     Indication: DIARRHOEA
     Dosage: 1 TABLET
     Route: 048

REACTIONS (16)
  - Squamous cell carcinoma of skin [Recovered/Resolved]
  - Neoplasm malignant [Not Recovered/Not Resolved]
  - Diarrhoea [Recovered/Resolved]
  - Rash [Not Recovered/Not Resolved]
  - Seborrhoea [Not Recovered/Not Resolved]
  - Staphylococcal infection [Unknown]
  - Macule [Unknown]
  - Infection [Not Recovered/Not Resolved]
  - Alopecia [Unknown]
  - Skin papilloma [Recovered/Resolved]
  - Rash [Recovering/Resolving]
  - Mass [Recovering/Resolving]
  - Sunburn [Recovered/Resolved]
  - Blood creatinine increased [Recovered/Resolved]
  - Drug ineffective [Unknown]
  - Mass [Unknown]
